FAERS Safety Report 21504216 (Version 2)
Quarter: 2022Q4

REPORT INFORMATION
  Report Type: Spontaneous
  Country: JP (occurrence: JP)
  Receive Date: 20221025
  Receipt Date: 20221108
  Transmission Date: 20230113
  Serious: Yes (Other)
  Sender: FDA-Public Use
  Company Number: JP-TEVA-2022-JP-2819563

PATIENT
  Sex: Female

DRUGS (2)
  1. SULFASALAZINE [Suspect]
     Active Substance: SULFASALAZINE
     Indication: Polyarthritis
     Route: 065
  2. BUCILLAMINE [Suspect]
     Active Substance: BUCILLAMINE
     Indication: Polyarthritis
     Route: 065

REACTIONS (1)
  - Cytopenia [Unknown]
